FAERS Safety Report 5841208-8 (Version None)
Quarter: 2008Q3

REPORT INFORMATION
  Report Type: 
  Country: None (occurrence: None)
  Receive Date: 20080812
  Receipt Date: 20080807
  Transmission Date: 20090109
  Serious: Yes (Life-Threatening, Hospitalization)
  Sender: FDA-Public Use
  Company Number: GB-JNJFOC-20080801617

PATIENT
  Age: 67 Year
  Sex: Male
  Weight: 65 kg

DRUGS (8)
  1. CLADRIBINE [Suspect]
     Indication: HAIRY CELL LEUKAEMIA
     Route: 058
  2. ITRACONAZOLE [Concomitant]
     Route: 048
  3. ACYCLOVIR [Concomitant]
     Route: 048
  4. ALLOPURINOL [Concomitant]
     Route: 065
  5. BENDROFLUMETHIAZIDE [Concomitant]
     Indication: HYPERTENSION
     Route: 048
  6. CIPROFLOXACIN [Concomitant]
     Indication: INFECTION PROPHYLAXIS
     Route: 065
  7. CO-TRIMOXAZOLE [Concomitant]
     Route: 065
  8. SIMVASTATIN [Concomitant]
     Indication: HYPERLIPIDAEMIA
     Route: 048

REACTIONS (9)
  - DISSEMINATED INTRAVASCULAR COAGULATION [None]
  - HYPERBILIRUBINAEMIA [None]
  - HYPERSENSITIVITY [None]
  - HYPOTENSION [None]
  - PYREXIA [None]
  - RASH [None]
  - RENAL IMPAIRMENT [None]
  - SWELLING FACE [None]
  - THROMBOCYTOPENIA [None]
